FAERS Safety Report 10569524 (Version 3)
Quarter: 2014Q4

REPORT INFORMATION
  Report Type: Spontaneous
  Country: US (occurrence: US)
  Receive Date: 20141106
  Receipt Date: 20141128
  Transmission Date: 20150529
  Serious: Yes (Hospitalization, Other)
  Sender: FDA-Public Use
  Company Number: US-AMGEN-USASP2014084847

PATIENT
  Age: 55 Year
  Sex: Female
  Weight: 68.49 kg

DRUGS (15)
  1. BENADRYL [Concomitant]
     Active Substance: DIPHENHYDRAMINE HYDROCHLORIDE
     Dosage: 25 MG, UNK
  2. FOLINIC ACID [Concomitant]
     Active Substance: LEUCOVORIN
     Indication: COLON CANCER METASTATIC
     Dosage: UNK
  3. CORTIZONE-10                       /00028601/ [Concomitant]
     Dosage: UNK UNK, TWICE DAILY
  4. KLONOPIN [Concomitant]
     Active Substance: CLONAZEPAM
     Dosage: 1 MG, ONE(1) TABLET AS NEEDED DURING THE DAY AND 2 TABLETS AT BEDTIME
     Route: 048
  5. ZOFRAN                             /00955301/ [Concomitant]
     Active Substance: ONDANSETRON HYDROCHLORIDE
     Dosage: 1 TABLET EVERY 8 HOURS AS NEEDED
     Route: 048
  6. VECTIBIX [Suspect]
     Active Substance: PANITUMUMAB
     Indication: COLORECTAL CANCER STAGE IV
     Dosage: 427.5 MG, DAY 1 AND 15 ON 28 D CYCLE
     Route: 042
     Dates: start: 20140905
  7. EMLA [Concomitant]
     Active Substance: LIDOCAINE\PRILOCAINE
     Dosage: UNK AS NEEDED
  8. LEXAPRO [Concomitant]
     Active Substance: ESCITALOPRAM OXALATE
     Dosage: 20 MG, ONCE DAILY
     Route: 048
  9. ACTIGALL [Concomitant]
     Active Substance: URSODIOL
     Dosage: 300 MG, UNK
  10. IRINOTECAN [Concomitant]
     Active Substance: IRINOTECAN
     Indication: COLON CANCER METASTATIC
     Dosage: UNK
  11. HEPARIN [Concomitant]
     Active Substance: HEPARIN SODIUM
     Dosage: 100 UNIT/ML
  12. ELIDEL [Concomitant]
     Active Substance: PIMECROLIMUS
     Dosage: UNK UNK, TWICE DAILY
  13. TOPICORT                           /00370301/ [Concomitant]
     Dosage: UNK UNK, TWICE DAILY
  14. OXALIPLATIN. [Concomitant]
     Active Substance: OXALIPLATIN
     Indication: COLON CANCER METASTATIC
     Dosage: UNK
  15. 5-FU                               /00098801/ [Concomitant]
     Active Substance: FLUOROURACIL
     Indication: COLON CANCER METASTATIC
     Dosage: UNK

REACTIONS (31)
  - Jaundice [Unknown]
  - Carcinoembryonic antigen increased [Unknown]
  - Bile duct obstruction [Unknown]
  - Skin disorder [Unknown]
  - Dry skin [Unknown]
  - Rash [Unknown]
  - Oedema [Unknown]
  - Skin tightness [Unknown]
  - Lacrimation decreased [Unknown]
  - Erythema [Unknown]
  - Abdominal discomfort [Unknown]
  - Vomiting [Recovered/Resolved]
  - Eczema [Unknown]
  - Growth of eyelashes [Unknown]
  - Waist circumference increased [Unknown]
  - Pruritus [Unknown]
  - Hypokalaemia [Unknown]
  - Skin lesion [Unknown]
  - Pancreatitis [Recovered/Resolved]
  - Ocular hyperaemia [Unknown]
  - Nausea [Recovered/Resolved]
  - Eyelash hyperpigmentation [Unknown]
  - Blood bilirubin abnormal [Unknown]
  - Abdominal pain [Unknown]
  - Skin burning sensation [Unknown]
  - Eye pruritus [Unknown]
  - Ascites [Unknown]
  - Weight increased [Unknown]
  - Ocular discomfort [Unknown]
  - Dry eye [Unknown]
  - Skin exfoliation [Unknown]
